FAERS Safety Report 10549957 (Version 1)
Quarter: 2014Q4

REPORT INFORMATION
  Report Type: Spontaneous
  Country: US (occurrence: None)
  Receive Date: 20141020
  Receipt Date: 20141020
  Transmission Date: 20150529
  Serious: No
  Sender: FDA-Public Use
  Company Number: AEGR000747

PATIENT
  Age: 73 Year
  Sex: Male

DRUGS (11)
  1. VITAMIN E (TOCOPHERYL ACETATE) [Concomitant]
  2. ASPIRIN (ACETYLSALICYLIC ACID) [Concomitant]
     Active Substance: ASPIRIN
  3. SPIRONOLACTONE. [Concomitant]
     Active Substance: SPIRONOLACTONE
  4. LISINOPRIL. [Concomitant]
     Active Substance: LISINOPRIL
  5. COQ10 (UBIDECARENONE) [Concomitant]
     Active Substance: UBIDECARENONE
  6. VITAMIN D3 [Concomitant]
     Active Substance: CHOLECALCIFEROL
  7. ATORVASTATIN (ATORVASTATIN CALCIUM) [Concomitant]
  8. JUXTAPID [Suspect]
     Active Substance: LOMITAPIDE MESYLATE
     Indication: PRODUCT USED FOR UNKNOWN INDICATION
     Dates: start: 20140527
  9. ZETIA [Concomitant]
     Active Substance: EZETIMIBE
  10. NIASPAN (NICOTINIC ACID) [Concomitant]
  11. OMEGA 3 6 9 (OMEGA 9 FATTY ACIDS, OMEGA-3 FATTY ACIDS, OMEGA-6 FATTY ACIDS) [Concomitant]

REACTIONS (2)
  - Diarrhoea [None]
  - Product used for unknown indication [None]

NARRATIVE: CASE EVENT DATE: 20140527
